FAERS Safety Report 6908105-8 (Version None)
Quarter: 2010Q3

REPORT INFORMATION
  Report Type: 
  Country: None (occurrence: None)
  Receive Date: 20100805
  Receipt Date: 20100727
  Transmission Date: 20110219
  Serious: Yes (Congenital Anomaly)
  Sender: FDA-Public Use
  Company Number: AR-B.I. PHARMACEUTICALS,INC./RIDGEFIELD-2010-BP-08485BP

PATIENT
  Sex: Female

DRUGS (12)
  1. VIRAMUNE [Suspect]
     Indication: DRUG EXPOSURE DURING PREGNANCY
     Route: 064
     Dates: start: 20051012, end: 20051025
  2. VIRAMUNE [Suspect]
     Route: 064
     Dates: start: 20051026
  3. VIDEX [Concomitant]
     Indication: DRUG EXPOSURE DURING PREGNANCY
     Route: 064
     Dates: start: 20060104
  4. VIRACEPT [Concomitant]
     Indication: DRUG EXPOSURE DURING PREGNANCY
     Route: 064
     Dates: start: 20060104
  5. VIRACEPT [Concomitant]
     Route: 064
     Dates: start: 20040630, end: 20050909
  6. FERROUS SULFATE [Concomitant]
     Indication: DRUG EXPOSURE DURING PREGNANCY
     Route: 064
  7. FOLINIC ACID [Concomitant]
     Indication: DRUG EXPOSURE DURING PREGNANCY
     Route: 064
  8. SULFAMETHOXAZOLE [Concomitant]
     Indication: DRUG EXPOSURE DURING PREGNANCY
     Route: 064
  9. COMBIVIR [Concomitant]
     Indication: DRUG EXPOSURE DURING PREGNANCY
     Route: 064
     Dates: start: 20051012, end: 20060103
  10. COMBIVIR [Concomitant]
     Route: 064
     Dates: start: 20040630, end: 20050909
  11. SUSTIVA [Concomitant]
     Indication: DRUG EXPOSURE DURING PREGNANCY
     Route: 064
     Dates: start: 20040326, end: 20050909
  12. TRIMETHOPRIM + SULFAMETHOXAZOLE [Concomitant]
     Indication: DRUG EXPOSURE DURING PREGNANCY
     Route: 064

REACTIONS (1)
  - PULMONARY ARTERY STENOSIS CONGENITAL [None]
